FAERS Safety Report 7938664-8 (Version None)
Quarter: 2011Q4

REPORT INFORMATION
  Report Type: 
  Country: None (occurrence: None)
  Receive Date: 20111123
  Receipt Date: 20111111
  Transmission Date: 20120403
  Serious: Yes (Life-Threatening, Other)
  Sender: FDA-Public Use
  Company Number: DE-ROCHE-1012773

PATIENT
  Age: 71 Year
  Sex: Female

DRUGS (9)
  1. METHYLPREDNISOLONE [Concomitant]
     Indication: PREMEDICATION
     Route: 042
  2. MABTHERA [Suspect]
     Indication: RHEUMATOID ARTHRITIS
     Route: 042
     Dates: start: 20081201, end: 20101004
  3. FENISTIL [Concomitant]
     Indication: PREMEDICATION
     Route: 042
  4. BRICANYL [Concomitant]
  5. CANDESARTAN CILEXETIL [Concomitant]
  6. DEXAMETHASONE [Concomitant]
  7. ACETAMINOPHEN [Concomitant]
     Indication: PREMEDICATION
     Route: 048
  8. SPIRIVA [Concomitant]
  9. FERROUS SULFATE TAB [Concomitant]

REACTIONS (5)
  - BRONCHITIS [None]
  - SYNCOPE [None]
  - CYTOKINE RELEASE SYNDROME [None]
  - HYPOTENSION [None]
  - RESPIRATORY ARREST [None]
